FAERS Safety Report 8218006-3 (Version None)
Quarter: 2012Q1

REPORT INFORMATION
  Report Type: 
  Country: None (occurrence: None)
  Receive Date: 20120319
  Receipt Date: 20120314
  Transmission Date: 20120608
  Serious: Yes (Hospitalization, Other)
  Sender: FDA-Public Use
  Company Number: FR-PFIZER INC-2011306079

PATIENT
  Age: 71 Year
  Sex: Female

DRUGS (5)
  1. EFFEXOR [Suspect]
     Indication: MAJOR DEPRESSION
     Dosage: 125 MG DAILY
     Route: 048
     Dates: start: 19950101, end: 20111125
  2. XANAX [Concomitant]
     Dosage: 0.5 MG, 1X/DAY
     Route: 048
  3. ZOLPIDEM [Concomitant]
     Dosage: 10 MG, 1X/DAY
     Route: 048
  4. NEBIVOLOL HCL [Concomitant]
     Indication: HYPERTENSION
     Dosage: 2.5 MG, 1X/DAY
     Route: 048
  5. ATHYMIL [Suspect]
     Indication: MAJOR DEPRESSION
     Dosage: 10 MG DAILY
     Route: 048
     Dates: start: 19950101, end: 20111125

REACTIONS (7)
  - MUSCLE HAEMORRHAGE [None]
  - MYELOFIBROSIS [None]
  - HAEMATOMA [None]
  - MYELODYSPLASTIC SYNDROME [None]
  - ANAEMIA [None]
  - THROMBOCYTOPENIA [None]
  - EPISTAXIS [None]
